FAERS Safety Report 8243528-9 (Version None)
Quarter: 2012Q1

REPORT INFORMATION
  Report Type: 
  Country: None (occurrence: None)
  Receive Date: 20120329
  Receipt Date: 20120323
  Transmission Date: 20120608
  Serious: Yes (Death, Other)
  Sender: FDA-Public Use
  Company Number: PHFR2010GB04616

PATIENT

DRUGS (1)
  1. CLOZARIL [Suspect]
     Route: 064

REACTIONS (3)
  - STILLBIRTH [None]
  - TRISOMY 18 [None]
  - FOETAL EXPOSURE DURING PREGNANCY [None]
